FAERS Safety Report 4984254-9 (Version None)
Quarter: 2006Q2

REPORT INFORMATION
  Report Type: 
  Country: None (occurrence: None)
  Receive Date: 20060420
  Receipt Date: 20060411
  Transmission Date: 20061013
  Serious: Yes (Hospitalization, Other)
  Sender: FDA-Public Use
  Company Number: 2006043972

PATIENT
  Age: 62 Year
  Sex: Female

DRUGS (10)
  1. ALPRAZOLAM [Suspect]
     Indication: INSOMNIA
     Dosage: 0.5 MG (0.5 MG, 1 IN 1 D), ORAL
     Route: 048
     Dates: start: 19960101
  2. METFORMIN [Concomitant]
  3. GLYBURIDE [Concomitant]
  4. AMITRIPTYLINE (AMITRIPTYLINE) [Concomitant]
  5. ENALAPRIL MALEATE [Concomitant]
  6. ATENSINE (DIAZEPAM) [Concomitant]
  7. METOPROLOL TARTRATE [Concomitant]
  8. OMEPRAZOLE [Concomitant]
  9. BALCOR (DILTIAZEM  HYDROCHLORIDE) [Concomitant]
  10. SERTRALINE [Concomitant]

REACTIONS (1)
  - CEREBRAL ISCHAEMIA [None]
